FAERS Safety Report 12890307 (Version 2)
Quarter: 2017Q1

REPORT INFORMATION
  Report Type: Spontaneous
  Country: US (occurrence: US)
  Receive Date: 20161027
  Receipt Date: 20170106
  Transmission Date: 20170428
  Serious: No
  Sender: FDA-Public Use
  Company Number: US-PFIZER INC-2016499817

PATIENT
  Age: 86 Year
  Sex: Female

DRUGS (29)
  1. ASPIRIN. [Concomitant]
     Active Substance: ASPIRIN
     Dosage: 81 MG, DAILY
     Route: 048
  2. LUCENTIS [Concomitant]
     Active Substance: RANIBIZUMAB
     Dosage: 6 MG/ML, MONTHLY (1 INJECTION, ONCE A MONTH, RIGHT EYE)
     Route: 031
     Dates: start: 20151202
  3. OMEPRAZOLE. [Concomitant]
     Active Substance: OMEPRAZOLE
     Dosage: 40 MG, 1X/DAY (IN THE MORNING)
     Route: 048
  4. XARELTO [Concomitant]
     Active Substance: RIVAROXABAN
     Dosage: 15 MG, DAILY
     Route: 048
  5. LASIX [Concomitant]
     Active Substance: FUROSEMIDE
     Dosage: 20 MG, AS NEEDED
     Route: 048
  6. LISINOPRIL. [Concomitant]
     Active Substance: LISINOPRIL
     Dosage: 5 MG, DAILY
     Route: 048
  7. LUCENTIS [Concomitant]
     Active Substance: RANIBIZUMAB
     Dosage: 6 MG/ML, MONTHLY (1 INJECTION, ONCE A MONTH, RIGHT EYE)
     Route: 031
     Dates: start: 20151007
  8. LUCENTIS [Concomitant]
     Active Substance: RANIBIZUMAB
     Dosage: 6 MG/ML, MONTHLY (1 INJECTION, ONCE A MONTH, RIGHT EYE)
     Route: 031
     Dates: start: 20160803
  9. VITAMIN B12 [Concomitant]
     Active Substance: CYANOCOBALAMIN
     Dosage: 1000 UG/ML, MONTHLY (1 INJECTION PER MONTH)
  10. CALCIUM + VITAMIN D [Concomitant]
     Active Substance: CALCIUM\VITAMIN D
     Dosage: 1 DF, 2X/DAY [CALCIUM: 1250 MG]/[ COLECALCIFEROL: 200 MG]
     Route: 048
  11. IMDUR [Concomitant]
     Active Substance: ISOSORBIDE MONONITRATE
     Dosage: 60 MG, DAILY
     Route: 048
  12. GLUCOSAMINE CHONDROITIN [Concomitant]
     Active Substance: CHONDROITIN SULFATE (BOVINE)\GLUCOSAMINE HYDROCHLORIDE
     Dosage: 1 DF, DAILY [CHONDROITIN SULFATE: 500 MG]/[GLUCOSAMINE SULFATE: 400 MG]
     Route: 048
  13. LUCENTIS [Concomitant]
     Active Substance: RANIBIZUMAB
     Dosage: 6 MG/ML, MONTHLY (1 INJECTION, ONCE A MONTH, RIGHT EYE)
     Route: 031
     Dates: start: 20151104
  14. LUCENTIS [Concomitant]
     Active Substance: RANIBIZUMAB
     Dosage: 6 MG/ML, MONTHLY (1 INJECTION, ONCE A MONTH, RIGHT EYE)
     Route: 031
     Dates: start: 20160208
  15. LUCENTIS [Concomitant]
     Active Substance: RANIBIZUMAB
     Dosage: 6 MG/ML, MONTHLY (1 INJECTION, ONCE A MONTH, RIGHT EYE)
     Route: 031
     Dates: start: 20160510
  16. OCUVITE [Concomitant]
     Active Substance: VITAMINS
     Dosage: 1 DF, DAILY
     Route: 048
  17. LYRICA [Suspect]
     Active Substance: PREGABALIN
     Indication: DIABETIC NEUROPATHY
     Dosage: 200 MG, 2X/DAY
     Route: 048
     Dates: start: 20161015, end: 20161019
  18. CENTRUM SILVER [Concomitant]
     Active Substance: MINERALS\VITAMINS
     Dosage: UNK, DAILY
     Route: 048
  19. TOPROL XL [Concomitant]
     Active Substance: METOPROLOL SUCCINATE
     Dosage: UNK UNK, 1X/DAY (0.5 TABLET, IN THE EVENING)
  20. TYLENOL [Concomitant]
     Active Substance: ACETAMINOPHEN
     Indication: PAIN
     Dosage: 1000 MG, AS NEEDED [500 MG, TABLET, ORAL, 2, (3 TIMES A DAY), AS NEEDED FOR PAIN]
     Route: 048
  21. NASONEX [Concomitant]
     Active Substance: MOMETASONE FUROATE
     Dosage: 50 UG, 2X/DAY (1 SPRAY EACH NOSTRIL 2 TIMES PER DAY)
  22. SYNTHROID [Concomitant]
     Active Substance: LEVOTHYROXINE SODIUM
     Dosage: 25 UG, 1X/DAY (IN THE MORNING)
     Route: 048
  23. TYLENOL [Concomitant]
     Active Substance: ACETAMINOPHEN
     Indication: PYREXIA
  24. VITAMIN C [Concomitant]
     Active Substance: ASCORBIC ACID
     Dosage: 1000 MG, DAILY (1000 MG DAILY AFTER BREAKFAST)
     Route: 048
  25. VITAMIN D3 [Concomitant]
     Active Substance: CHOLECALCIFEROL
     Dosage: 1000 IU, DAILY
     Route: 048
  26. LYRICA [Suspect]
     Active Substance: PREGABALIN
     Indication: NEURALGIA
     Dosage: 200 MG, 2X/DAY
     Route: 048
  27. AMOXICILLIN. [Concomitant]
     Active Substance: AMOXICILLIN
     Dosage: 2000 MG, UNK (TAKE 4 CAPSULES BY MOUTH 1 HOUR PRIOR TO DENTAL CLEANING OR PROCEDURE)
     Route: 048
  28. EPIPEN [Concomitant]
     Active Substance: EPINEPHRINE
     Indication: ANAPHYLAXIS TREATMENT
     Dosage: 0.3 MG, UNK (1, AS DIRECTED)
  29. FISH OIL [Concomitant]
     Active Substance: FISH OIL
     Dosage: 1000 MG, DAILY
     Route: 048

REACTIONS (5)
  - Tremor [Recovered/Resolved]
  - Drug withdrawal syndrome [Recovered/Resolved]
  - Feeling abnormal [Recovered/Resolved]
  - Nausea [Recovered/Resolved]
  - Headache [Recovered/Resolved]
